FAERS Safety Report 20662068 (Version 1)
Quarter: 2022Q2

REPORT INFORMATION
  Report Type: Report from Study
  Country: AR (occurrence: AR)
  Receive Date: 20220401
  Receipt Date: 20220401
  Transmission Date: 20220721
  Serious: Yes (Hospitalization, Other)
  Sender: FDA-Public Use
  Company Number: AR-NOVARTISPH-NVSC2022AR071718

PATIENT
  Sex: Male

DRUGS (2)
  1. DIOVAN [Suspect]
     Active Substance: VALSARTAN
     Indication: Hypertension
     Dosage: 1 DOSAGE FORM, QD
     Route: 065
     Dates: start: 2011, end: 2017
  2. HYDROCHLOROTHIAZIDE\VALSARTAN [Suspect]
     Active Substance: HYDROCHLOROTHIAZIDE\VALSARTAN
     Indication: Hypertension
     Dosage: 1 DOSAGE FORM, QD
     Route: 065
     Dates: start: 2009, end: 2011

REACTIONS (5)
  - Hypertension [Unknown]
  - Headache [Unknown]
  - Cerebrovascular accident [Unknown]
  - Pollakiuria [Unknown]
  - Hypotension [Unknown]

NARRATIVE: CASE EVENT DATE: 20110101
